FAERS Safety Report 22307208 (Version 1)
Quarter: 2023Q2

REPORT INFORMATION
  Report Type: Spontaneous
  Country: US (occurrence: None)
  Receive Date: 20230511
  Receipt Date: 20230511
  Transmission Date: 20230721
  Serious: No
  Sender: FDA-Public Use
  Company Number: US-ROCHE-3055543

PATIENT
  Sex: Female
  Weight: 115.77 kg

DRUGS (4)
  1. OCREVUS [Suspect]
     Active Substance: OCRELIZUMAB
     Indication: Relapsing-remitting multiple sclerosis
     Dosage: NO
     Route: 042
     Dates: start: 201904, end: 202106
  2. RITUXAN [Suspect]
     Active Substance: RITUXIMAB
     Indication: Multiple sclerosis
     Dosage: NO
     Route: 065
     Dates: start: 201609, end: 201810
  3. ZOLOFT [Concomitant]
     Active Substance: SERTRALINE HYDROCHLORIDE
     Route: 048
  4. ZOMIG [Concomitant]
     Active Substance: ZOLMITRIPTAN
     Dosage: MAXIMUM OF 2 TABS PER DAY OR 9 TABS PER MONTH
     Route: 048

REACTIONS (3)
  - Maternal exposure before pregnancy [Unknown]
  - Off label use [Unknown]
  - No adverse event [Unknown]
